FAERS Safety Report 6428741-5 (Version None)
Quarter: 2009Q4

REPORT INFORMATION
  Report Type: 
  Country: None (occurrence: None)
  Receive Date: 20091105
  Receipt Date: 20091026
  Transmission Date: 20100525
  Serious: No
  Sender: FDA-Public Use
  Company Number: US-B.I. PHARMACEUTICALS,INC./RIDGEFIELD-2009-BP-12382BP

PATIENT
  Age: 50 Year
  Sex: Male

DRUGS (4)
  1. CATAPRES-TTS-1 [Suspect]
     Indication: HYPERTENSION
     Dosage: 0.3 MG
     Route: 061
     Dates: start: 20090921, end: 20091019
  2. VERAPAMIL [Concomitant]
     Indication: PALPITATIONS
  3. ANDROGEL [Concomitant]
     Indication: BLOOD TESTOSTERONE DECREASED
  4. PENTOXIFYLLINE [Concomitant]

REACTIONS (1)
  - APPLICATION SITE RASH [None]
